FAERS Safety Report 11564812 (Version 1)
Quarter: 2015Q3

REPORT INFORMATION
  Report Type: Spontaneous
  Country: FI (occurrence: FI)
  Receive Date: 20150928
  Receipt Date: 20150928
  Transmission Date: 20151125
  Serious: Yes (Death, Other)
  Sender: FDA-Public Use
  Company Number: FI-ASTRAZENECA-2015SE93463

PATIENT
  Sex: Female
  Weight: 1.9 kg

DRUGS (5)
  1. ANAFRANIL [Concomitant]
     Active Substance: CLOMIPRAMINE HYDROCHLORIDE
     Route: 064
  2. MIFEGYNE [Concomitant]
     Active Substance: MIFEPRISTONE
     Route: 064
  3. SEROQUEL [Suspect]
     Active Substance: QUETIAPINE FUMARATE
     Route: 064
  4. CYTOTEC [Concomitant]
     Active Substance: MISOPROSTOL
     Route: 064
  5. SERONIL [Concomitant]
     Active Substance: FLUOXETINE HYDROCHLORIDE
     Route: 064

REACTIONS (2)
  - Foetal growth restriction [Unknown]
  - Umbilical cord around neck [Fatal]

NARRATIVE: CASE EVENT DATE: 201401
